FAERS Safety Report 9197711 (Version 2)
Quarter: 2013Q2

REPORT INFORMATION
  Report Type: Spontaneous
  Country: US (occurrence: US)
  Receive Date: 20130328
  Receipt Date: 20130401
  Transmission Date: 20140414
  Serious: Yes (Other)
  Sender: FDA-Public Use
  Company Number: US-BAYER-2013-036729

PATIENT
  Age: 53 Year
  Sex: Male
  Weight: 68.03 kg

DRUGS (2)
  1. ALKA-SELTZER PLUS COLD [Suspect]
     Indication: RHINORRHOEA
     Dosage: 2 DF, ONCE
     Route: 048
     Dates: start: 20130319, end: 20130319
  2. ALKA-SELTZER PLUS COLD [Suspect]
     Indication: RHINORRHOEA
     Dosage: 2 DF, ONCE
     Route: 048
     Dates: start: 20130319, end: 20130319

REACTIONS (4)
  - Aphagia [Recovered/Resolved]
  - Oesophageal spasm [Recovered/Resolved]
  - Wrong drug administered [None]
  - Dysphagia [Recovered/Resolved]
